FAERS Safety Report 8978863 (Version 1)
Quarter: 2012Q4

REPORT INFORMATION
  Report Type: Spontaneous
  Country: US (occurrence: None)
  Receive Date: 20121218
  Receipt Date: 20121218
  Transmission Date: 20130627
  Serious: No
  Sender: FDA-Public Use
  Company Number: None

PATIENT
  Age: 47 Year
  Sex: Female
  Weight: 60 kg

DRUGS (1)
  1. SODIUM CHLORIDE [Suspect]
     Dosage: 3000 ml  IV Drip
     Route: 041
     Dates: start: 20121204, end: 20121204

REACTIONS (2)
  - Medication error [None]
  - Incorrect route of drug administration [None]
